FAERS Safety Report 7419777-6 (Version None)
Quarter: 2011Q2

REPORT INFORMATION
  Report Type: 
  Country: None (occurrence: None)
  Receive Date: 20110418
  Receipt Date: 20110404
  Transmission Date: 20111010
  Serious: Yes (Other)
  Sender: FDA-Public Use
  Company Number: CA-JNJFOC-20110403052

PATIENT
  Sex: Female
  Weight: 58.6 kg

DRUGS (1)
  1. REMICADE [Suspect]
     Indication: PSORIATIC ARTHROPATHY
     Dosage: WEEKS 0-2-6
     Route: 042

REACTIONS (1)
  - MOUTH ULCERATION [None]
